FAERS Safety Report 4339510-4 (Version None)
Quarter: 2004Q2

REPORT INFORMATION
  Report Type: 
  Country: None (occurrence: None)
  Receive Date: 20040415
  Receipt Date: 20011127
  Transmission Date: 20050107
  Serious: Yes (Hospitalization, Disabling, Other)
  Sender: FDA-Public Use
  Company Number: PHFR2001GB03263

PATIENT
  Age: 40 Year
  Sex: Male

DRUGS (6)
  1. CLOZARIL [Suspect]
     Indication: SCHIZOPHRENIA
     Dosage: 400MG/DAY
     Route: 048
     Dates: start: 19910905, end: 20010621
  2. LANSOPRAZOLE [Concomitant]
     Dosage: 250MG/DAY
     Route: 048
  3. ATENOLOL [Concomitant]
     Dosage: 25MG/DAY
     Route: 048
  4. FERROUS SULFATE TAB [Concomitant]
     Route: 048
  5. ENSURE [Concomitant]
     Route: 048
  6. LACTULOSE [Concomitant]
     Dosage: 20ML/DAY
     Route: 048

REACTIONS (5)
  - HAEMOGLOBIN ABNORMAL [None]
  - OESOPHAGEAL HAEMORRHAGE [None]
  - OESOPHAGITIS [None]
  - RENAL FAILURE ACUTE [None]
  - VOMITING [None]
